FAERS Safety Report 13707757 (Version 1)
Quarter: 2017Q2

REPORT INFORMATION
  Report Type: Spontaneous
  Country: US (occurrence: US)
  Receive Date: 20170630
  Receipt Date: 20170630
  Transmission Date: 20170830
  Serious: Yes (Other)
  Sender: FDA-Public Use
  Company Number: US-UCBSA-2017025030

PATIENT
  Age: 25 Year
  Sex: Male

DRUGS (1)
  1. BRIVIACT [Suspect]
     Active Substance: BRIVARACETAM
     Indication: EPILEPSY
     Dosage: 50 MG, 2X/DAY (BID)
     Route: 048
     Dates: start: 20160102

REACTIONS (3)
  - Brain operation [Unknown]
  - Dizziness [Unknown]
  - Feeling drunk [Unknown]

NARRATIVE: CASE EVENT DATE: 2016
